FAERS Safety Report 9156298 (Version 1)
Quarter: 2013Q1

REPORT INFORMATION
  Report Type: Spontaneous
  Country: US (occurrence: US)
  Receive Date: 20130312
  Receipt Date: 20130312
  Transmission Date: 20140127
  Serious: Yes (Other)
  Sender: FDA-Public Use
  Company Number: US-AMGEN-USASP2013015536

PATIENT
  Age: 64 Year
  Sex: Male
  Weight: 65.31 kg

DRUGS (12)
  1. PROCRIT [Suspect]
     Indication: HAEMOLYTIC ANAEMIA
     Dosage: UNK
     Route: 058
     Dates: start: 2009
  2. HYDROXYUREA [Suspect]
     Indication: ESSENTIAL THROMBOCYTHAEMIA
     Dosage: 500 MG, UNK AS NEEDED
  3. ANAGRELIDE [Suspect]
     Indication: THROMBOCYTOSIS
     Dosage: UNK
  4. ASPIRIN [Concomitant]
     Indication: CEREBROVASCULAR ACCIDENT PROPHYLAXIS
     Dosage: 81 MG, UNK
     Route: 048
  5. DOCUSATE SODIUM [Concomitant]
     Indication: ABNORMAL FAECES
     Dosage: UNK UNK, 2 TIMES/WK
     Route: 048
  6. METOPROLOL [Concomitant]
     Indication: BLOOD PRESSURE ABNORMAL
     Dosage: 50 MG, QD
     Route: 048
  7. SIMVASTATIN [Concomitant]
     Indication: BLOOD CHOLESTEROL ABNORMAL
     Dosage: UNK
  8. LEVOTHYROXINE [Concomitant]
     Indication: THYROID DISORDER
     Dosage: UNK
  9. OMEPRAZOLE [Concomitant]
     Dosage: UNK
  10. IRON [Concomitant]
     Dosage: UNK
  11. VITAMINS                           /00067501/ [Concomitant]
     Dosage: UNK
  12. OMEGA 3 FISH OIL [Concomitant]
     Dosage: UNK

REACTIONS (2)
  - Haemoglobin abnormal [Not Recovered/Not Resolved]
  - Glucose-6-phosphate dehydrogenase [Not Recovered/Not Resolved]
